FAERS Safety Report 23082860 (Version 1)
Quarter: 2023Q4

REPORT INFORMATION
  Report Type: Spontaneous
  Country: ES (occurrence: ES)
  Receive Date: 20231019
  Receipt Date: 20231019
  Transmission Date: 20240109
  Serious: Yes (Life-Threatening)
  Sender: FDA-Public Use
  Company Number: None

PATIENT
  Age: 38 Year
  Sex: Female

DRUGS (2)
  1. AMOXICILLIN\CLAVULANIC ACID [Suspect]
     Active Substance: AMOXICILLIN\CLAVULANIC ACID
     Indication: Toothache
     Dosage: 1COMP/8H    , AMOXICILINA + ACIDO CLAVULANICO
     Route: 065
     Dates: start: 20230925, end: 20230925
  2. ENANDOL [Concomitant]
     Indication: Toothache
     Dosage: 3 DOSAGE FORMS DAILY;  1 TABLET/8H   , 10 TABLETS
     Dates: start: 20230925

REACTIONS (3)
  - Urticaria [Recovered/Resolved]
  - Pruritus [Recovered/Resolved]
  - Medication error [Recovered/Resolved]

NARRATIVE: CASE EVENT DATE: 20230925
